FAERS Safety Report 19394172 (Version 2)
Quarter: 2021Q3

REPORT INFORMATION
  Report Type: Report from Study
  Country: AR (occurrence: AR)
  Receive Date: 20210609
  Receipt Date: 20210826
  Transmission Date: 20211014
  Serious: Yes (Other)
  Sender: FDA-Public Use
  Company Number: AR-EMD SERONO-9242335

PATIENT
  Age: 14 Year
  Sex: Female

DRUGS (1)
  1. REBIF [Suspect]
     Active Substance: INTERFERON BETA-1A
     Indication: PRODUCT USED FOR UNKNOWN INDICATION
     Route: 058
     Dates: start: 20170616, end: 2021

REACTIONS (3)
  - Hemiparesis [Recovering/Resolving]
  - Off label use [Unknown]
  - Disease recurrence [Recovering/Resolving]

NARRATIVE: CASE EVENT DATE: 20170616
